FAERS Safety Report 8818574 (Version 1)
Quarter: 2012Q4

REPORT INFORMATION
  Report Type: 
  Country: US (occurrence: US)
  Receive Date: 20121001
  Receipt Date: 20121001
  Transmission Date: 20130627
  Serious: Yes (Other)
  Sender: FDA-Public Use
  Company Number: US-PFIZER INC-2012241949

PATIENT
  Sex: Male

DRUGS (3)
  1. LYRICA [Suspect]
     Dosage: UNK
     Route: 048
     Dates: start: 201209
  2. NEURONTIN [Suspect]
     Dosage: 1600 mg, 2x/day
     Route: 048
  3. ALCOHOL [Suspect]
     Dosage: UNK

REACTIONS (3)
  - Liver disorder [Unknown]
  - Oedema peripheral [Recovering/Resolving]
  - Weight decreased [Unknown]
